FAERS Safety Report 7723269-4 (Version None)
Quarter: 2011Q3

REPORT INFORMATION
  Report Type: 
  Country: None (occurrence: None)
  Receive Date: 20110901
  Receipt Date: 20110829
  Transmission Date: 20111222
  Serious: Yes (Other)
  Sender: FDA-Public Use
  Company Number: US-PFIZER INC-2011201092

PATIENT
  Sex: Female
  Weight: 63.5 kg

DRUGS (5)
  1. IMITREX [Concomitant]
     Indication: MIGRAINE
     Dosage: UNK
  2. METHADONE [Concomitant]
     Indication: MIGRAINE
     Dosage: UNK
  3. METOPROLOL [Concomitant]
     Indication: HYPERTENSION
     Dosage: UNK
  4. LYRICA [Suspect]
     Indication: FIBROMYALGIA
     Dosage: 75 MG, 3X/DAY
     Dates: start: 20080101
  5. IBUPROFEN [Concomitant]
     Indication: MIGRAINE
     Dosage: UNK

REACTIONS (1)
  - LIVER FUNCTION TEST ABNORMAL [None]
